FAERS Safety Report 22060205 (Version 1)
Quarter: 2023Q1

REPORT INFORMATION
  Report Type: Spontaneous
  Country: US (occurrence: None)
  Receive Date: 20230302
  Receipt Date: 20230302
  Transmission Date: 20230418
  Serious: Yes (Other)
  Sender: FDA-Public Use
  Company Number: None

PATIENT
  Age: 36 Year
  Sex: Male
  Weight: 83.25 kg

DRUGS (1)
  1. METHYLPHENIDATE HYDROCHLORIDE [Suspect]
     Active Substance: METHYLPHENIDATE HYDROCHLORIDE
     Indication: Craniocerebral injury
     Dosage: 1 TABLET TWICE A DAY ORAL
     Route: 048
     Dates: start: 20230121

REACTIONS (9)
  - Urticaria [None]
  - Pruritus [None]
  - Dry skin [None]
  - Skin fissures [None]
  - Drug ineffective [None]
  - Product substitution issue [None]
  - Product quality issue [None]
  - Depressed level of consciousness [None]
  - Somnolence [None]

NARRATIVE: CASE EVENT DATE: 20230121
